FAERS Safety Report 18000194 (Version 1)
Quarter: 2020Q3

REPORT INFORMATION
  Report Type: Spontaneous
  Country: US (occurrence: US)
  Receive Date: 20200709
  Receipt Date: 20200709
  Transmission Date: 20201103
  Serious: Yes (Hospitalization)
  Sender: FDA-Public Use
  Company Number: US-PFIZER INC-2020261762

PATIENT
  Age: 87 Year
  Sex: Male
  Weight: 111.13 kg

DRUGS (1)
  1. VYNDAQEL [Suspect]
     Active Substance: TAFAMIDIS MEGLUMINE
     Indication: CARDIAC AMYLOIDOSIS
     Dosage: 80 MG (FOUR CAPSULES), DAILY
     Route: 048
     Dates: start: 2019

REACTIONS (1)
  - Lumbar spinal stenosis [Unknown]
